FAERS Safety Report 4333031-0 (Version None)
Quarter: 2004Q2

REPORT INFORMATION
  Report Type: 
  Country: None (occurrence: None)
  Receive Date: 20040406
  Receipt Date: 20031210
  Transmission Date: 20050107
  Serious: Yes (Hospitalization)
  Sender: FDA-Public Use
  Company Number: ES-ROCHE-353711

PATIENT
  Age: 71 Year
  Sex: Female
  Weight: 68 kg

DRUGS (3)
  1. IBANDRONIC ACID [Suspect]
     Indication: OSTEOPOROSIS POSTMENOPAUSAL
     Dosage: ROUTE, DOSE AND FREQUENCY BLINDED.
     Route: 065
     Dates: start: 20030129, end: 20031209
  2. IBANDRONIC ACID [Suspect]
     Dosage: ROUTE, DOSE AND FREQUENCY BLINDED.
     Route: 065
     Dates: start: 20040204
  3. PIROXICAM [Suspect]
     Indication: DRUG USE FOR UNKNOWN INDICATION
     Route: 065
     Dates: start: 20031127, end: 20031209

REACTIONS (1)
  - GASTRIC ULCER [None]
